FAERS Safety Report 24278775 (Version 1)
Quarter: 2024Q3

REPORT INFORMATION
  Report Type: Spontaneous
  Country: US (occurrence: US)
  Receive Date: 20240903
  Receipt Date: 20240903
  Transmission Date: 20241017
  Serious: No
  Sender: ABBVIE
  Company Number: US-ABBVIE-5897889

PATIENT
  Age: 62 Year
  Sex: Female

DRUGS (1)
  1. DALVANCE [Suspect]
     Active Substance: DALBAVANCIN
     Indication: Osteomyelitis
     Dosage: TIME INTERVAL: AS NECESSARY: FORM STRENGTH: 1500 MILLIGRAM, FREQUENCY TEXT: ONE DOSE
     Route: 042

REACTIONS (3)
  - Off label use [Not Recovered/Not Resolved]
  - Nausea [Recovered/Resolved]
  - Vomiting [Recovered/Resolved]
